FAERS Safety Report 6464699-0 (Version None)
Quarter: 2009Q4

REPORT INFORMATION
  Report Type: 
  Country: None (occurrence: None)
  Receive Date: 20091201
  Receipt Date: 20091116
  Transmission Date: 20100525
  Serious: Yes (Hospitalization)
  Sender: FDA-Public Use
  Company Number: FR-BRISTOL-MYERS SQUIBB COMPANY-14874945

PATIENT
  Age: 76 Year
  Sex: Male

DRUGS (10)
  1. GLUCOPHAGE [Suspect]
     Indication: DIABETES MELLITUS
     Route: 048
  2. AMAREL [Interacting]
     Dosage: TAB
     Route: 048
  3. CIFLOX [Interacting]
     Dosage: CIFLOX 500 MG TABS;2 D.F:1 D.F;2 IN 1 DAY
     Route: 048
     Dates: start: 20091001
  4. FLAGYL [Concomitant]
     Dosage: 2000MG
     Route: 048
  5. LERCANIDIPINE [Concomitant]
  6. LESCOL [Concomitant]
  7. HYZAAR [Concomitant]
     Dosage: 1 D.F= 15/12.5 MG PER DAY
  8. TEMERIT [Concomitant]
  9. ALDACTONE [Concomitant]
  10. KARDEGIC [Concomitant]

REACTIONS (2)
  - DRUG INTERACTION [None]
  - HYPOGLYCAEMIA [None]
